FAERS Safety Report 8459761-7 (Version None)
Quarter: 2012Q2

REPORT INFORMATION
  Report Type: 
  Country: None (occurrence: None)
  Receive Date: 20120622
  Receipt Date: 20120613
  Transmission Date: 20120825
  Serious: Yes (Hospitalization, Disabling, Other)
  Sender: FDA-Public Use
  Company Number: US-MERCK-1108USA03400

PATIENT
  Age: 60 Year
  Sex: Female
  Weight: 103 kg

DRUGS (14)
  1. ATROVENT [Concomitant]
     Route: 065
  2. FOSAMAX [Suspect]
     Route: 048
     Dates: start: 20010101, end: 20060926
  3. BONIVA [Suspect]
     Indication: OSTEOPOROSIS
     Route: 065
     Dates: start: 20060926, end: 20100101
  4. NEXIUM [Concomitant]
     Route: 065
  5. VITAMINS (UNSPECIFIED) [Concomitant]
     Route: 065
     Dates: start: 19900101
  6. VITAMIN E [Concomitant]
     Route: 065
     Dates: start: 19900101
  7. SYNTHROID [Concomitant]
     Route: 065
  8. PROCARDIA [Concomitant]
     Indication: CARDIAC DISORDER
     Route: 065
     Dates: start: 19700101
  9. ADVAIR DISKUS 100/50 [Concomitant]
     Indication: ASTHMA
     Route: 065
     Dates: start: 20010101
  10. FOSAMAX PLUS D [Suspect]
     Route: 048
     Dates: start: 20050901
  11. FOSAMAX [Suspect]
     Indication: OSTEOPOROSIS
     Route: 048
     Dates: start: 19980101, end: 20010101
  12. ASCORBIC ACID [Concomitant]
     Route: 065
     Dates: start: 19900101
  13. OSTEO-BI-FLEX [Concomitant]
     Route: 065
     Dates: start: 19900101
  14. ALBUTEROL [Concomitant]
     Indication: ASTHMA
     Route: 065
     Dates: start: 19970101

REACTIONS (80)
  - ARTERIOSCLEROSIS [None]
  - DIVERTICULUM [None]
  - UPPER-AIRWAY COUGH SYNDROME [None]
  - WEIGHT INCREASED [None]
  - VOMITING [None]
  - PELVIC PAIN [None]
  - PAIN IN EXTREMITY [None]
  - OVARIAN ATROPHY [None]
  - GRANULOMA [None]
  - HYPERLIPIDAEMIA [None]
  - OSTEOPOROSIS [None]
  - LOW TURNOVER OSTEOPATHY [None]
  - INTERVERTEBRAL DISC SPACE NARROWING [None]
  - TINNITUS [None]
  - ABDOMINAL PAIN LOWER [None]
  - VERTIGO [None]
  - ORAL DISORDER [None]
  - DYSPNOEA EXERTIONAL [None]
  - FEMUR FRACTURE [None]
  - CEREBROVASCULAR ACCIDENT [None]
  - FALL [None]
  - MYOCARDIAL INFARCTION [None]
  - DEAFNESS [None]
  - DEPRESSION [None]
  - DENTAL CARIES [None]
  - POLLAKIURIA [None]
  - TOOTH LOSS [None]
  - TOOTH FRACTURE [None]
  - PHLEBOLITH [None]
  - LUMBAR VERTEBRAL FRACTURE [None]
  - LABYRINTHITIS [None]
  - DYSPHONIA [None]
  - BUNDLE BRANCH BLOCK LEFT [None]
  - GALLBLADDER DISORDER [None]
  - STRESS URINARY INCONTINENCE [None]
  - SINUS DISORDER [None]
  - LIVER DISORDER [None]
  - HAEMOGLOBIN DECREASED [None]
  - UTERINE DISORDER [None]
  - CALCULUS URETERIC [None]
  - OSTEOARTHRITIS [None]
  - CONTUSION [None]
  - JOINT INJURY [None]
  - SYNOVITIS [None]
  - SPINAL OSTEOARTHRITIS [None]
  - TENSION [None]
  - CONJUNCTIVAL HAEMORRHAGE [None]
  - NAUSEA [None]
  - HEPATIC CYST [None]
  - ABDOMINAL DISCOMFORT [None]
  - COLONIC POLYP [None]
  - CONSTIPATION [None]
  - JOINT EFFUSION [None]
  - STOMATITIS [None]
  - HYPERTENSION [None]
  - URINARY TRACT INFECTION [None]
  - TOOTH DISORDER [None]
  - OEDEMA PERIPHERAL [None]
  - LARYNGITIS [None]
  - ARTHRALGIA [None]
  - HORMONE LEVEL ABNORMAL [None]
  - GASTROINTESTINAL DISORDER [None]
  - SYNOVIAL CYST [None]
  - APHONIA [None]
  - APPENDIX DISORDER [None]
  - BLADDER DISORDER [None]
  - DRUG ADMINISTRATION ERROR [None]
  - HYPERGLYCAEMIA [None]
  - CALCULUS URINARY [None]
  - HYDRONEPHROSIS [None]
  - HAEMATURIA [None]
  - CATARACT [None]
  - AORTIC CALCIFICATION [None]
  - STRESS FRACTURE [None]
  - ANGINA PECTORIS [None]
  - DENTAL DISORDER PROPHYLAXIS [None]
  - HYPERCHOLESTEROLAEMIA [None]
  - SINUSITIS [None]
  - MENISCUS LESION [None]
  - VIITH NERVE PARALYSIS [None]
